FAERS Safety Report 6967999-0 (Version None)
Quarter: 2010Q3

REPORT INFORMATION
  Report Type: 
  Country: None (occurrence: None)
  Receive Date: 20100907
  Receipt Date: 20100901
  Transmission Date: 20110219
  Serious: Yes (Death)
  Sender: FDA-Public Use
  Company Number: A0878992A

PATIENT
  Age: 30 Year
  Sex: Male

DRUGS (2)
  1. PROMACTA [Suspect]
     Indication: IDIOPATHIC THROMBOCYTOPENIC PURPURA
     Dosage: 50MG PER DAY
     Dates: start: 20100403, end: 20100408
  2. RITUXIMAB [Concomitant]
     Indication: IDIOPATHIC THROMBOCYTOPENIC PURPURA

REACTIONS (10)
  - ANAEMIA [None]
  - FATIGUE [None]
  - GRANULOCYTOPENIA [None]
  - HAEMORRHAGE [None]
  - HEPATOSPLENOMEGALY [None]
  - INCREASED TENDENCY TO BRUISE [None]
  - LYMPHOMA [None]
  - NIGHT SWEATS [None]
  - PALLOR [None]
  - PYREXIA [None]
